FAERS Safety Report 8404064 (Version 2)
Quarter: 2012Q4

REPORT INFORMATION
  Report Type: Spontaneous
  Country: US (occurrence: None)
  Receive Date: 20111227
  Receipt Date: 20120426
  Transmission Date: 20130627
  Serious: Yes (Other)
  Sender: FDA-Public Use
  Company Number: PHEH2011US06511

PATIENT
  Age: 55 Year
  Sex: Female
  Weight: 102.5 kg

DRUGS (10)
  1. GILENYA [Suspect]
     Indication: MULTIPLE SCLEROSIS
     Route: 048
     Dates: start: 20110508, end: 20111005
  2. METFORMIN [Concomitant]
  3. GLYBURIDE (GLIBENCLAMIDE) [Concomitant]
  4. SYNTHROID (LEVOTHYROXINE SODIUM) [Concomitant]
  5. SULFAMEXOFINE [Concomitant]
  6. GABAPENTIN [Concomitant]
  7. BACLOFEN [Concomitant]
  8. PROZAC (FLUOXETINE HYDROCHLORIDE) [Concomitant]
  9. TRAZODONE [Concomitant]
  10. SIMVASTATIN [Concomitant]

REACTIONS (2)
  - Macular oedema [None]
  - Vision blurred [None]
